FAERS Safety Report 11357910 (Version 1)
Quarter: 2015Q3

REPORT INFORMATION
  Report Type: Spontaneous
  Country: US (occurrence: US)
  Receive Date: 20150803
  Receipt Date: 20150803
  Transmission Date: 20151125
  Serious: No
  Sender: FDA-Public Use
  Company Number: US-ELI_LILLY_AND_COMPANY-US200811001998

PATIENT
  Sex: Female

DRUGS (3)
  1. STRATTERA [Suspect]
     Active Substance: ATOMOXETINE HYDROCHLORIDE
     Indication: ATTENTION DEFICIT/HYPERACTIVITY DISORDER
     Dosage: 40 MG, UNKNOWN
     Route: 065
     Dates: start: 2005, end: 2006
  2. STRATTERA [Suspect]
     Active Substance: ATOMOXETINE HYDROCHLORIDE
     Dosage: 80 MG, UNKNOWN
     Route: 065
     Dates: start: 2006, end: 2006
  3. STRATTERA [Suspect]
     Active Substance: ATOMOXETINE HYDROCHLORIDE
     Dosage: 120 MG, UNKNOWN
     Route: 065
     Dates: start: 2006

REACTIONS (16)
  - Emotional disorder [Unknown]
  - Weight decreased [Unknown]
  - Sleep disorder [Unknown]
  - Drug ineffective [Unknown]
  - Paranoia [Unknown]
  - Abnormal behaviour [Unknown]
  - Mania [Unknown]
  - Hallucination, visual [Unknown]
  - Mood altered [Unknown]
  - Aggression [Unknown]
  - Drug tolerance [Unknown]
  - Personality change [Unknown]
  - Suspiciousness [Unknown]
  - Abnormal behaviour [Unknown]
  - Delusion [Unknown]
  - Overdose [Unknown]

NARRATIVE: CASE EVENT DATE: 2006
